FAERS Safety Report 15995127 (Version 1)
Quarter: 2019Q1

REPORT INFORMATION
  Report Type: Report from Study
  Country: US (occurrence: US)
  Receive Date: 20190222
  Receipt Date: 20190222
  Transmission Date: 20190418
  Serious: Yes (Hospitalization)
  Sender: FDA-Public Use
  Company Number: PHHO2011US023036

PATIENT
  Age: 47 Year
  Sex: Female
  Weight: 62 kg

DRUGS (3)
  1. TYVERB [Suspect]
     Active Substance: LAPATINIB
     Indication: BREAST CANCER
     Dosage: 750 MG, QD
     Route: 048
     Dates: start: 20110602, end: 20110609
  2. CARBOPLATIN. [Suspect]
     Active Substance: CARBOPLATIN
     Indication: BREAST CANCER
     Dosage: QW3
     Route: 042
     Dates: start: 20110602, end: 20110623
  3. DOCETAXEL. [Suspect]
     Active Substance: DOCETAXEL
     Indication: BREAST CANCER
     Dosage: 75 MG/M2, QW3
     Route: 042
     Dates: start: 20110602, end: 20110623

REACTIONS (4)
  - Hyperbilirubinaemia [Recovered/Resolved]
  - Vomiting [Not Recovered/Not Resolved]
  - Nausea [Not Recovered/Not Resolved]
  - Urinary bladder haemorrhage [Not Recovered/Not Resolved]

NARRATIVE: CASE EVENT DATE: 20110606
